FAERS Safety Report 12012682 (Version 2)
Quarter: 2017Q2

REPORT INFORMATION
  Report Type: Report from Study
  Country: None (occurrence: PR)
  Receive Date: 20160205
  Receipt Date: 20170529
  Transmission Date: 20170829
  Serious: Yes (Hospitalization, Other)
  Sender: FDA-Public Use
  Company Number: PR-ABBVIE-16K-131-1532105-00

PATIENT
  Age: 48 Year
  Sex: Female
  Weight: 39.04 kg

DRUGS (1)
  1. HUMIRA [Suspect]
     Active Substance: ADALIMUMAB
     Indication: CROHN^S DISEASE
     Route: 058
     Dates: start: 201209, end: 20151221

REACTIONS (6)
  - Abdominal adhesions [Unknown]
  - Abdominal pain [Recovering/Resolving]
  - Drug ineffective [Recovering/Resolving]
  - Gastrointestinal inflammation [Recovering/Resolving]
  - Abscess intestinal [Recovered/Resolved]
  - Intestinal mass [Unknown]

NARRATIVE: CASE EVENT DATE: 201512
